FAERS Safety Report 9457262 (Version 1)
Quarter: 2013Q3

REPORT INFORMATION
  Report Type: Spontaneous
  Country: GB (occurrence: None)
  Receive Date: 20130812
  Receipt Date: 20130812
  Transmission Date: 20140515
  Serious: Yes (Hospitalization)
  Sender: FDA-Public Use
  Company Number: AG-2012-1688

PATIENT
  Age: 87 Year
  Sex: Female
  Weight: 70 kg

DRUGS (8)
  1. CHLORAMBUCIL [Suspect]
     Indication: CHRONIC LYMPHOCYTIC LEUKAEMIA
     Dosage: ON DAY 1 AND 15.  LAST DOSE PRIOR TO SAE: 23/OCT/2012 (34 MILLIGRAM, UNKNOWN),ORAL
     Route: 048
     Dates: start: 20120517
  2. RITUXIMAB [Suspect]
     Indication: CHRONIC LYMPHOCYTIC LEUKAEMIA
     Dosage: IN CYCLE 1, (657 MILLIGAM, UNKNOWN), INTRAVENOUS (NOT OTHERWISE SPECIFIED)
     Route: 042
     Dates: start: 20120517
  3. ALENDRONIC ACID (ALENDRONIC ACID) [Concomitant]
  4. BISOPROLOL (BISOPROLOL) [Concomitant]
  5. CALCICHEW D3 (CALCIUM CARBONATE, COLECALCIFEROL) [Concomitant]
  6. LANSOPRAZOLE (LANSOPRAZOLE) [Concomitant]
  7. DIHYDROCODEIN (DIHYDROCODEINE) [Concomitant]
  8. CO-TRIMOXAZOLE (SULFAMETHOXAZOLE, TRIMETHOPRIM)) [Concomitant]

REACTIONS (5)
  - Vomiting [None]
  - Nausea [None]
  - Biliary dilatation [None]
  - Blood alkaline phosphatase increased [None]
  - Blood albumin abnormal [None]
